FAERS Safety Report 20283157 (Version 2)
Quarter: 2022Q1

REPORT INFORMATION
  Report Type: Spontaneous
  Country: AU (occurrence: AU)
  Receive Date: 20220103
  Receipt Date: 20220110
  Transmission Date: 20220423
  Serious: Yes (Hospitalization, Other)
  Sender: FDA-Public Use
  Company Number: AU-MYLANLABS-2021M1095475

PATIENT
  Sex: Female

DRUGS (1)
  1. CLOZARIL [Suspect]
     Active Substance: CLOZAPINE
     Indication: Schizophrenia
     Dosage: 150 MILLIGRAM
     Route: 048
     Dates: start: 20211129

REACTIONS (4)
  - C-reactive protein increased [Unknown]
  - Chest pain [Unknown]
  - Pyrexia [Unknown]
  - Myocarditis [Unknown]
